FAERS Safety Report 12159906 (Version 1)
Quarter: 2016Q1

REPORT INFORMATION
  Report Type: Report from Study
  Country: CA (occurrence: CA)
  Receive Date: 20160308
  Receipt Date: 20160308
  Transmission Date: 20160526
  Serious: Yes (Other)
  Sender: FDA-Public Use
  Company Number: CA-JNJFOC-20160303670

PATIENT
  Age: 65 Year
  Sex: Female
  Weight: 58.06 kg

DRUGS (2)
  1. SIMPONI [Suspect]
     Active Substance: GOLIMUMAB
     Indication: RHEUMATOID ARTHRITIS
     Route: 058
     Dates: start: 20160120
  2. SIMPONI [Suspect]
     Active Substance: GOLIMUMAB
     Indication: RHEUMATOID ARTHRITIS
     Route: 058
     Dates: start: 20140818

REACTIONS (3)
  - Pneumonia [Unknown]
  - Wound infection [Unknown]
  - Foot operation [Unknown]

NARRATIVE: CASE EVENT DATE: 20160113
